FAERS Safety Report 17070487 (Version 1)
Quarter: 2019Q4

REPORT INFORMATION
  Report Type: Spontaneous
  Country: CN (occurrence: CN)
  Receive Date: 20191125
  Receipt Date: 20191125
  Transmission Date: 20200122
  Serious: Yes (Other)
  Sender: FDA-Public Use
  Company Number: CN-ABBVIE-19P-035-3011561-00

PATIENT
  Age: 24 Year
  Sex: Male
  Weight: 58 kg

DRUGS (4)
  1. AMOXICILLIN. [Suspect]
     Active Substance: AMOXICILLIN
     Indication: HELICOBACTER INFECTION
     Route: 048
     Dates: start: 20191112, end: 20191112
  2. ESOMEPRAZOLE. [Suspect]
     Active Substance: ESOMEPRAZOLE MAGNESIUM
     Indication: HELICOBACTER INFECTION
     Route: 048
     Dates: start: 20191112, end: 20191112
  3. COLLOIDAL BISMUTH PECTIN [Concomitant]
     Active Substance: BISMUTH
     Indication: HELICOBACTER INFECTION
     Route: 048
     Dates: start: 20191112, end: 20191112
  4. KLACID [Suspect]
     Active Substance: CLARITHROMYCIN
     Indication: HELICOBACTER INFECTION
     Route: 048
     Dates: start: 20191112, end: 20191112

REACTIONS (8)
  - Dyspnoea [Recovering/Resolving]
  - Fatigue [Recovering/Resolving]
  - Dizziness [Recovering/Resolving]
  - Rash erythematous [Recovering/Resolving]
  - Anaphylactoid reaction [Recovering/Resolving]
  - Pruritus [Recovering/Resolving]
  - Temperature intolerance [Recovering/Resolving]
  - Heart rate increased [Recovering/Resolving]

NARRATIVE: CASE EVENT DATE: 20191112
